FAERS Safety Report 8303589-5 (Version None)
Quarter: 2012Q2

REPORT INFORMATION
  Report Type: 
  Country: None (occurrence: None)
  Receive Date: 20120423
  Receipt Date: 20120420
  Transmission Date: 20120825
  Serious: No
  Sender: FDA-Public Use
  Company Number: US-PFIZER INC-2011293323

PATIENT
  Sex: Female
  Weight: 73.016 kg

DRUGS (2)
  1. NABUMETONE [Concomitant]
     Indication: PAIN
     Dosage: UNK
  2. LYRICA [Suspect]
     Indication: FIBROMYALGIA
     Dosage: 100 MG, 2X/DAY
     Route: 048
     Dates: start: 20110801

REACTIONS (5)
  - MIGRAINE [None]
  - PAIN [None]
  - DRUG INEFFECTIVE [None]
  - MALAISE [None]
  - WEIGHT INCREASED [None]
